FAERS Safety Report 7507586-9 (Version None)
Quarter: 2011Q2

REPORT INFORMATION
  Report Type: 
  Country: None (occurrence: None)
  Receive Date: 20110526
  Receipt Date: 20100403
  Transmission Date: 20111010
  Serious: Yes (Death, Hospitalization)
  Sender: FDA-Public Use
  Company Number: US-MYLANLABS-2010S1005800

PATIENT
  Age: 65 Year
  Sex: Female

DRUGS (25)
  1. CYCRIN [Suspect]
     Indication: HORMONE REPLACEMENT THERAPY
  2. COMBIPATCH [Suspect]
     Indication: HORMONE REPLACEMENT THERAPY
  3. CLIMARA [Suspect]
  4. OGEN [Suspect]
     Indication: HORMONE REPLACEMENT THERAPY
  5. ETHINYL ESTRADIOL AND NORETHINDRONE [Suspect]
     Indication: HORMONE REPLACEMENT THERAPY
  6. CENESTIN [Suspect]
     Indication: HORMONE REPLACEMENT THERAPY
  7. PREMARIN [Suspect]
     Indication: HORMONE REPLACEMENT THERAPY
  8. PREMPRO [Suspect]
     Indication: HORMONE REPLACEMENT THERAPY
  9. PREMPHASE (PREMARIN;CYCRIN 14/14) [Suspect]
     Indication: HORMONE REPLACEMENT THERAPY
  10. MEDROXYPROGESTERONE ACETATE [Suspect]
     Indication: HORMONE REPLACEMENT THERAPY
  11. ESTRATAB [Suspect]
  12. ESTRATEST [Suspect]
  13. ESTRACE [Suspect]
     Indication: HORMONE REPLACEMENT THERAPY
  14. ACTIVELLA [Suspect]
     Indication: HORMONE REPLACEMENT THERAPY
  15. FEMHRT [Suspect]
     Indication: HORMONE REPLACEMENT THERAPY
  16. ESTRADERM [Suspect]
     Indication: HORMONE REPLACEMENT THERAPY
  17. ESTROPIPATE [Suspect]
     Indication: HORMONE REPLACEMENT THERAPY
  18. PROVERA [Suspect]
     Indication: HORMONE REPLACEMENT THERAPY
  19. VAGIFEM [Suspect]
     Indication: HORMONE REPLACEMENT THERAPY
  20. VIVELLE [Suspect]
     Indication: HORMONE REPLACEMENT THERAPY
  21. PREFEST [Suspect]
     Indication: HORMONE REPLACEMENT THERAPY
  22. ESTRADIOL [Suspect]
     Indication: HORMONE REPLACEMENT THERAPY
  23. AYGESTIN [Suspect]
  24. PROGESTERONE [Suspect]
     Indication: HORMONE REPLACEMENT THERAPY
  25. ORTHO TRI-CYCLEN [Suspect]
     Indication: HORMONE REPLACEMENT THERAPY

REACTIONS (1)
  - BREAST CANCER [None]
